FAERS Safety Report 25776793 (Version 1)
Quarter: 2025Q3

REPORT INFORMATION
  Report Type: Spontaneous
  Country: US (occurrence: US)
  Receive Date: 20250909
  Receipt Date: 20250909
  Transmission Date: 20251021
  Serious: No
  Sender: DOMPE FARMACEUTICI
  Company Number: US-FARMAPROD-202503-0953

PATIENT
  Age: 44 Year
  Sex: Male
  Weight: 56.7 kg

DRUGS (14)
  1. OXERVATE [Suspect]
     Active Substance: CENEGERMIN-BKBJ
     Indication: Neurotrophic keratopathy
     Route: 047
     Dates: start: 20250207
  2. NALTREXONE HYDROCHLORIDE [Concomitant]
     Active Substance: NALTREXONE HYDROCHLORIDE
  3. ACETAZOLAMIDE [Concomitant]
     Active Substance: ACETAZOLAMIDE
  4. BRIMONIDINE TARTRATE [Concomitant]
     Active Substance: BRIMONIDINE TARTRATE
  5. DORZOLAMIDE HYDROCHLORIDE [Concomitant]
     Active Substance: DORZOLAMIDE HYDROCHLORIDE
  6. MOXIFLOXACIN [Concomitant]
     Active Substance: MOXIFLOXACIN
  7. NOVOLOG [Concomitant]
     Active Substance: INSULIN ASPART
  8. VITAMIN D3 [Concomitant]
     Active Substance: CHOLECALCIFEROL
  9. GVOKE HYPOPEN 1-PACK [Concomitant]
  10. ACETAMINOPHEN [Concomitant]
     Active Substance: ACETAMINOPHEN
  11. PREDNISOLONE ACETATE [Concomitant]
     Active Substance: PREDNISOLONE ACETATE
  12. LOPERAMIDE [Concomitant]
     Active Substance: LOPERAMIDE
  13. LEVEMIR [Concomitant]
     Active Substance: INSULIN DETEMIR
  14. MELATONIN [Concomitant]
     Active Substance: MELATONIN

REACTIONS (1)
  - Product dose omission issue [Unknown]

NARRATIVE: CASE EVENT DATE: 20250319
